FAERS Safety Report 9351772 (Version 5)
Quarter: 2014Q4

REPORT INFORMATION
  Report Type: Report from Study
  Country: US (occurrence: US)
  Receive Date: 20130617
  Receipt Date: 20141212
  Transmission Date: 20150529
  Serious: Yes (Hospitalization, Other)
  Sender: FDA-Public Use
  Company Number: US-BIOGENIDEC-2013BI051646

PATIENT
  Age: 47 Year
  Sex: Male

DRUGS (1)
  1. AVONEX [Suspect]
     Active Substance: INTERFERON BETA-1A
     Indication: MULTIPLE SCLEROSIS
     Route: 030
     Dates: start: 20110515

REACTIONS (30)
  - Hypoxia [Recovered/Resolved]
  - Memory impairment [Not Recovered/Not Resolved]
  - Aspiration [Recovered/Resolved]
  - Hand fracture [Unknown]
  - Malaise [Recovered/Resolved]
  - Depressed mood [Not Recovered/Not Resolved]
  - Ocular hyperaemia [Recovered/Resolved]
  - Headache [Not Recovered/Not Resolved]
  - Frustration [Not Recovered/Not Resolved]
  - Balance disorder [Not Recovered/Not Resolved]
  - Emotional distress [Not Recovered/Not Resolved]
  - Eye pain [Recovered/Resolved]
  - Hypoaesthesia [Not Recovered/Not Resolved]
  - Influenza like illness [Not Recovered/Not Resolved]
  - Aphasia [Recovered/Resolved]
  - Respiratory failure [Recovered/Resolved]
  - Lung disorder [Unknown]
  - Resuscitation [Recovered/Resolved]
  - Somnolence [Recovered/Resolved]
  - Fall [Recovered/Resolved]
  - Amnesia [Not Recovered/Not Resolved]
  - Gastrointestinal disorder [Recovered/Resolved]
  - Vomiting [Recovered/Resolved]
  - Mental impairment [Not Recovered/Not Resolved]
  - Fear [Not Recovered/Not Resolved]
  - Muscle spasms [Not Recovered/Not Resolved]
  - Flatulence [Recovered/Resolved]
  - Asthma [Unknown]
  - Fatigue [Not Recovered/Not Resolved]
  - Cognitive disorder [Recovered/Resolved]

NARRATIVE: CASE EVENT DATE: 20110515
